FAERS Safety Report 12322020 (Version 2)
Quarter: 2016Q2

REPORT INFORMATION
  Report Type: Spontaneous
  Country: JP (occurrence: JP)
  Receive Date: 20160502
  Receipt Date: 20160524
  Transmission Date: 20160815
  Serious: Yes (Other)
  Sender: FDA-Public Use
  Company Number: JP-GLAXOSMITHKLINE-JP2016JPN057509

PATIENT
  Age: 67 Year
  Sex: Male
  Weight: 54 kg

DRUGS (5)
  1. ACETATED RINGER [Concomitant]
     Indication: ANAESTHETIC PREMEDICATION
     Dosage: UNK
  2. METHYLPREDNISOLONE SODIUM SUCCINATE. [Suspect]
     Active Substance: METHYLPREDNISOLONE SODIUM SUCCINATE
     Indication: ANAESTHETIC PREMEDICATION
     Dosage: 2 G, UNK
  3. ULINASTATIN [Suspect]
     Active Substance: ULINASTATIN
     Indication: ANAESTHETIC PREMEDICATION
     Dosage: 300000 IU, UNK
  4. RANITIDIN [Suspect]
     Active Substance: RANITIDINE HYDROCHLORIDE
     Indication: ANAESTHETIC PREMEDICATION
     Dosage: 50 MG, UNK
     Route: 041
  5. MORPHINE [Suspect]
     Active Substance: MORPHINE
     Indication: ANAESTHETIC PREMEDICATION
     Dosage: 5 MG, UNK
     Route: 030

REACTIONS (9)
  - Urticaria [Recovered/Resolved]
  - Cardiac arrest [Recovered/Resolved]
  - Pruritus generalised [Recovered/Resolved]
  - Anaphylactic shock [Recovered/Resolved]
  - Loss of consciousness [Recovered/Resolved]
  - Blood pressure decreased [Recovered/Resolved]
  - Delirium [Recovered/Resolved]
  - Heart rate increased [Recovered/Resolved]
  - Pulse absent [Recovered/Resolved]
